FAERS Safety Report 6913509-3 (Version None)
Quarter: 2010Q3

REPORT INFORMATION
  Report Type: 
  Country: None (occurrence: None)
  Receive Date: 20100805
  Receipt Date: 20100805
  Transmission Date: 20110219
  Serious: Yes (Other)
  Sender: FDA-Public Use
  Company Number: None

PATIENT
  Sex: Female
  Weight: 84.369 kg

DRUGS (6)
  1. LEVOTHYROXINE SODIUM [Suspect]
     Indication: HYPOTHYROIDISM
     Dosage: 112 MCG DAILY
  2. DIOVAN HCT [Concomitant]
  3. PRAVASTATIN [Concomitant]
  4. VITAMINS [Concomitant]
  5. CALCIUM [Concomitant]
  6. ASPIRIN [Concomitant]

REACTIONS (3)
  - ALOPECIA [None]
  - FATIGUE [None]
  - PRODUCT SUBSTITUTION ISSUE [None]
